FAERS Safety Report 15993421 (Version 1)
Quarter: 2019Q1

REPORT INFORMATION
  Report Type: Spontaneous
  Country: IL (occurrence: IL)
  Receive Date: 20190222
  Receipt Date: 20190222
  Transmission Date: 20190418
  Serious: Yes (Other)
  Sender: FDA-Public Use
  Company Number: IL-009507513-1902ISR008032

PATIENT
  Age: 57 Year
  Sex: Female

DRUGS (1)
  1. KEYTRUDA [Suspect]
     Active Substance: PEMBROLIZUMAB
     Indication: LUNG NEOPLASM MALIGNANT

REACTIONS (4)
  - Blood glucose abnormal [Unknown]
  - Amylase increased [Unknown]
  - Product use in unapproved indication [Unknown]
  - Immunoglobulin G4 related disease [Unknown]
